FAERS Safety Report 9637842 (Version 1)
Quarter: 2013Q4

REPORT INFORMATION
  Report Type: Spontaneous
  Country: US (occurrence: US)
  Receive Date: 20131022
  Receipt Date: 20131022
  Transmission Date: 20140711
  Serious: No
  Sender: FDA-Public Use
  Company Number: US-009507513-1309USA012667

PATIENT
  Sex: Male

DRUGS (1)
  1. PEGINTRON [Suspect]
     Indication: HEPATITIS C
     Dosage: 1 DOSE ONCE A WEEK, QW; EVERY FRIDAY
     Route: 058
     Dates: start: 20130710

REACTIONS (2)
  - Mood swings [Recovered/Resolved]
  - Product quality issue [Unknown]
